FAERS Safety Report 14321749 (Version 2)
Quarter: 2018Q1

REPORT INFORMATION
  Report Type: Spontaneous
  Country: US (occurrence: US)
  Receive Date: 20171224
  Receipt Date: 20180220
  Transmission Date: 20180509
  Serious: No
  Sender: FDA-Public Use
  Company Number: US-009507513-1712USA008928

PATIENT
  Age: 25 Year
  Sex: Female
  Weight: 74.1 kg

DRUGS (1)
  1. NEXPLANON [Suspect]
     Active Substance: ETONOGESTREL
     Dosage: 1 IMPLANT, LEFT ARM
     Route: 059
     Dates: start: 201604, end: 20171213

REACTIONS (10)
  - Menstruation irregular [Unknown]
  - Device difficult to use [Recovered/Resolved]
  - Procedural pain [Recovering/Resolving]
  - Complication of device removal [Recovered/Resolved]
  - Device deployment issue [Recovered/Resolved]
  - Device breakage [Recovered/Resolved]
  - Complication associated with device [Recovered/Resolved]
  - Surgery [Unknown]
  - Implant site scar [Unknown]
  - Implant site haemorrhage [Unknown]

NARRATIVE: CASE EVENT DATE: 201604
